FAERS Safety Report 18882737 (Version 1)
Quarter: 2021Q1

REPORT INFORMATION
  Report Type: Report from Study
  Country: US (occurrence: US)
  Receive Date: 20210211
  Receipt Date: 20210211
  Transmission Date: 20210420
  Serious: Yes (Other)
  Sender: FDA-Public Use
  Company Number: US-EXELIXIS-CABO-21037311

PATIENT
  Sex: Male
  Weight: 59.86 kg

DRUGS (1)
  1. CABOMETYX [Suspect]
     Active Substance: CABOZANTINIB S-MALATE
     Indication: RENAL CANCER
     Dosage: 40 MG (20 MG, 2 TABLETS DAILY)
     Route: 048
     Dates: start: 20200127

REACTIONS (1)
  - Intra-abdominal fluid collection [Unknown]
